FAERS Safety Report 5102940-7 (Version None)
Quarter: 2006Q3

REPORT INFORMATION
  Report Type: 
  Country: None (occurrence: None)
  Receive Date: 20060912
  Receipt Date: 20060523
  Transmission Date: 20061208
  Serious: Yes (Hospitalization)
  Sender: FDA-Public Use
  Company Number: JP-BOEHRINGER INGELHEIM PHARMACEUTICALS, INC.-2006-BP-06260NB

PATIENT
  Sex: Male
  Weight: 40 kg

DRUGS (10)
  1. BI-SIFROL TABLETS [Suspect]
     Indication: PARKINSONISM
     Route: 048
     Dates: start: 20060118, end: 20060207
  2. PAXIL [Concomitant]
     Indication: DEPRESSION
     Route: 048
     Dates: start: 20060111
  3. EC-DOPARL (LEVODOPA_BENSERAZIDE HYDROCHLORIDE) [Concomitant]
     Indication: PARKINSONISM
     Route: 048
     Dates: start: 20060111
  4. DOPS [Concomitant]
     Indication: ORTHOSTATIC HYPOTENSION
     Route: 048
     Dates: start: 20060111
  5. 8-HOUR BAYER [Concomitant]
     Indication: CEREBRAL INFARCTION
     Route: 048
     Dates: start: 20060111
  6. PROCYLIN [Concomitant]
     Indication: ARTERIOSCLEROSIS OBLITERANS
     Route: 048
     Dates: start: 20060111
  7. RENIVACE [Concomitant]
     Indication: HYPERTENSION
     Route: 048
     Dates: start: 20060111
  8. LENDORMIN [Concomitant]
     Indication: INSOMNIA
     Route: 048
     Dates: start: 20060111
  9. PERMAX [Concomitant]
     Indication: PARKINSONISM
     Route: 048
  10. ACINON [Concomitant]
     Indication: REFLUX OESOPHAGITIS
     Route: 048
     Dates: start: 20060111

REACTIONS (1)
  - INAPPROPRIATE ANTIDIURETIC HORMONE SECRETION [None]
